FAERS Safety Report 7031563-8 (Version None)
Quarter: 2010Q4

REPORT INFORMATION
  Report Type: 
  Country: None (occurrence: None)
  Receive Date: 20101006
  Receipt Date: 20101006
  Transmission Date: 20110411
  Serious: Yes (Disabling, Other)
  Sender: FDA-Public Use
  Company Number: None

PATIENT
  Age: 59 Year
  Sex: Male
  Weight: 130.6359 kg

DRUGS (3)
  1. WELCHOL [Suspect]
     Indication: BLOOD CHOLESTEROL INCREASED
     Dosage: 1 PKG 1 DAILY PO
     Route: 048
     Dates: start: 20100816, end: 20101002
  2. WELCHOL [Suspect]
     Indication: PROPHYLAXIS
     Dosage: 1 PKG 1 DAILY PO
     Route: 048
     Dates: start: 20100816, end: 20101002
  3. WELCHOL [Suspect]
     Indication: VASCULAR GRAFT
     Dosage: 1 PKG 1 DAILY PO
     Route: 048
     Dates: start: 20100816, end: 20101002

REACTIONS (6)
  - CONSTIPATION [None]
  - GOUT [None]
  - MUSCLE DISORDER [None]
  - MUSCULAR WEAKNESS [None]
  - PAIN IN EXTREMITY [None]
  - TRIGGER FINGER [None]
